FAERS Safety Report 13675122 (Version 1)
Quarter: 2017Q2

REPORT INFORMATION
  Report Type: Spontaneous
  Country: CA (occurrence: CA)
  Receive Date: 20170621
  Receipt Date: 20170621
  Transmission Date: 20170830
  Serious: Yes (Other)
  Sender: FDA-Public Use
  Company Number: CA-SA-2017SA109492

PATIENT
  Age: 71 Year
  Sex: Female

DRUGS (17)
  1. PREDNISONE. [Concomitant]
     Active Substance: PREDNISONE
  2. PIROXICAM. [Concomitant]
     Active Substance: PIROXICAM
  3. REMICADE [Concomitant]
     Active Substance: INFLIXIMAB
     Route: 042
  4. METHOTREXATE SODIUM. [Concomitant]
     Active Substance: METHOTREXATE SODIUM
     Indication: RHEUMATOID ARTHRITIS
  5. ENBREL [Concomitant]
     Active Substance: ETANERCEPT
     Indication: RHEUMATOID ARTHRITIS
  6. HUMIRA [Concomitant]
     Active Substance: ADALIMUMAB
     Indication: RHEUMATOID ARTHRITIS
     Route: 058
  7. PLAQUENIL [Suspect]
     Active Substance: HYDROXYCHLOROQUINE SULFATE
     Route: 048
  8. ARAVA [Suspect]
     Active Substance: LEFLUNOMIDE
     Indication: PRODUCT USE IN UNAPPROVED INDICATION
     Route: 048
  9. SODIUM AUROTHIOMALATE [Suspect]
     Active Substance: GOLD SODIUM THIOMALATE
     Route: 051
  10. SIMPONI [Concomitant]
     Active Substance: GOLIMUMAB
     Route: 058
  11. ORENCIA [Concomitant]
     Active Substance: ABATACEPT
  12. SULFASALAZINE. [Concomitant]
     Active Substance: SULFASALAZINE
     Indication: RHEUMATOID ARTHRITIS
  13. CELLCEPT [Concomitant]
     Active Substance: MYCOPHENOLATE MOFETIL\MYCOPHENOLATE MOFETIL HYDROCHLORIDE
  14. ACTEMRA [Concomitant]
     Active Substance: TOCILIZUMAB
  15. RITUXAN [Concomitant]
     Active Substance: RITUXIMAB
     Dosage: FORM: SOLUTION FOR INJECTION/INFUSION
     Route: 042
  16. HYDROXYCHLOROQUINE [Concomitant]
     Active Substance: HYDROXYCHLOROQUINE
  17. LYRICA [Concomitant]
     Active Substance: PREGABALIN
     Indication: RHEUMATOID ARTHRITIS
     Route: 048

REACTIONS (11)
  - Psoriatic arthropathy [Unknown]
  - Drug hypersensitivity [Unknown]
  - Condition aggravated [Unknown]
  - Rheumatoid arthritis [Unknown]
  - Drug intolerance [Unknown]
  - Unevaluable event [Unknown]
  - Sinusitis [Unknown]
  - Sciatica [Unknown]
  - Drug effect incomplete [Unknown]
  - Treatment failure [Unknown]
  - Rash [Unknown]
